FAERS Safety Report 19217321 (Version 4)
Quarter: 2021Q2

REPORT INFORMATION
  Report Type: Spontaneous
  Country: US (occurrence: US)
  Receive Date: 20210505
  Receipt Date: 20210624
  Transmission Date: 20210717
  Serious: Yes (Other)
  Sender: FDA-Public Use
  Company Number: US-PFIZER INC-2021495552

PATIENT
  Age: 58 Year
  Sex: Male
  Weight: 98.43 kg

DRUGS (1)
  1. LIPITOR [Suspect]
     Active Substance: ATORVASTATIN CALCIUM
     Indication: BLOOD CHOLESTEROL INCREASED
     Dosage: UNK
     Dates: end: 202007

REACTIONS (11)
  - Amnesia [Unknown]
  - Burning sensation [Recovered/Resolved]
  - Condition aggravated [Unknown]
  - Prescribed overdose [Unknown]
  - Rhabdomyolysis [Not Recovered/Not Resolved]
  - Musculoskeletal stiffness [Unknown]
  - Gait inability [Recovering/Resolving]
  - Hypoaesthesia [Recovering/Resolving]
  - Nerve injury [Not Recovered/Not Resolved]
  - Blindness [Unknown]
  - Limb discomfort [Recovering/Resolving]

NARRATIVE: CASE EVENT DATE: 2020
